FAERS Safety Report 4353193-9 (Version None)
Quarter: 2004Q2

REPORT INFORMATION
  Report Type: 
  Country: None (occurrence: None)
  Receive Date: 20040503
  Receipt Date: 20040503
  Transmission Date: 20050107
  Serious: No
  Sender: FDA-Public Use
  Company Number: None

PATIENT
  Age: 65 Year
  Sex: Male
  Weight: 104.5 kg

DRUGS (1)
  1. SPIRONOLACTONE [Suspect]
     Indication: HYPERALDOSTERONISM
     Dosage: 25 MG BID ORAL
     Route: 048
     Dates: start: 20011016, end: 20031219

REACTIONS (1)
  - GYNAECOMASTIA [None]
